FAERS Safety Report 13553671 (Version 1)
Quarter: 2017Q2

REPORT INFORMATION
  Report Type: Spontaneous
  Country: US (occurrence: US)
  Receive Date: 20170517
  Receipt Date: 20170517
  Transmission Date: 20170830
  Serious: No
  Sender: FDA-Public Use
  Company Number: US-MYLANLABS-2016M1047199

PATIENT
  Age: 83 Year
  Sex: Female

DRUGS (1)
  1. LUXIQ [Suspect]
     Active Substance: BETAMETHASONE VALERATE
     Indication: PRURITUS
     Dosage: UNK
     Route: 061

REACTIONS (2)
  - Drug ineffective [Not Recovered/Not Resolved]
  - Product physical consistency issue [Not Recovered/Not Resolved]
